FAERS Safety Report 9715409 (Version 1)
Quarter: 2013Q4

REPORT INFORMATION
  Report Type: Spontaneous
  Country: DE (occurrence: DE)
  Receive Date: 20131127
  Receipt Date: 20131127
  Transmission Date: 20140711
  Serious: Yes (Hospitalization)
  Sender: FDA-Public Use
  Company Number: DE-BIOGENIDEC-2013BI113366

PATIENT
  Age: 67 Year
  Sex: Female

DRUGS (2)
  1. AVONEX [Suspect]
     Indication: RELAPSING-REMITTING MULTIPLE SCLEROSIS
     Route: 030
     Dates: start: 20100901
  2. ACETYLSALICYLIC ACID [Concomitant]
     Indication: CAROTID ARTERY OCCLUSION
     Dates: start: 201311

REACTIONS (1)
  - Vaginal haematoma [Recovered/Resolved]
